FAERS Safety Report 4289210-4 (Version None)
Quarter: 2004Q1

REPORT INFORMATION
  Report Type: 
  Country: None (occurrence: None)
  Receive Date: 20040115
  Receipt Date: 20021118
  Transmission Date: 20041129
  Serious: Yes (Death)
  Sender: FDA-Public Use
  Company Number: 103299

PATIENT
  Age: 86 Year
  Sex: Female
  Weight: 54.5 kg

DRUGS (2)
  1. ACTIVASE [Suspect]
     Indication: ISCHAEMIC STROKE
     Dosage: 6 MG, IV BOLUS ; 42 MG IV DRIP
     Route: 042
     Dates: start: 20020621, end: 20020621
  2. PLAVIX [Suspect]
     Indication: ACUTE MYOCARDIAL INFARCTION

REACTIONS (1)
  - HAEMORRHAGE INTRACRANIAL [None]
